FAERS Safety Report 10872325 (Version 1)
Quarter: 2015Q1

REPORT INFORMATION
  Report Type: Spontaneous
  Country: US (occurrence: None)
  Receive Date: 20150220
  Receipt Date: 20150220
  Transmission Date: 20150721
  Serious: No
  Sender: FDA-Public Use
  Company Number: None

PATIENT
  Age: 59 Year
  Sex: Male

DRUGS (2)
  1. RAPAMUNE [Suspect]
     Active Substance: SIROLIMUS
     Indication: RENAL TRANSPLANT
     Dosage: 3 TABLETS
     Route: 048
     Dates: start: 20140306
  2. NEORAL [Suspect]
     Active Substance: CYCLOSPORINE
     Indication: RENAL TRANSPLANT
     Dosage: 4 CAPSULES
     Route: 048
     Dates: start: 20140306

REACTIONS (5)
  - Nausea [None]
  - Vomiting [None]
  - Pyrexia [None]
  - Asthenia [None]
  - Chills [None]

NARRATIVE: CASE EVENT DATE: 20150217
